FAERS Safety Report 12690081 (Version 2)
Quarter: 2016Q3

REPORT INFORMATION
  Report Type: Spontaneous
  Country: DE (occurrence: DE)
  Receive Date: 20160826
  Receipt Date: 20160909
  Transmission Date: 20161109
  Serious: Yes (Death)
  Sender: FDA-Public Use
  Company Number: DE-FRESENIUS KABI-FK201605812

PATIENT
  Age: 4 Year
  Sex: Male
  Weight: 19 kg

DRUGS (3)
  1. KETANEST [Concomitant]
     Active Substance: KETAMINE HYDROCHLORIDE
     Indication: SEDATION
  2. MIDAZOLAM [Concomitant]
     Active Substance: MIDAZOLAM\MIDAZOLAM HYDROCHLORIDE
     Indication: SEDATION
  3. PROPOFOL (MANUFACTURER UNKNOWN) [Suspect]
     Active Substance: PROPOFOL
     Indication: MEDICAL INDUCTION OF COMA
     Route: 042
     Dates: start: 20160727, end: 20160730

REACTIONS (2)
  - Off label use [Fatal]
  - Propofol infusion syndrome [Fatal]
